FAERS Safety Report 10003801 (Version 1)
Quarter: 2014Q1

REPORT INFORMATION
  Report Type: Spontaneous
  Country: FI (occurrence: FI)
  Receive Date: 20140312
  Receipt Date: 20140312
  Transmission Date: 20141002
  Serious: Yes (Other)
  Sender: FDA-Public Use
  Company Number: FI-BAXTER-2014BAX011994

PATIENT
  Sex: Male

DRUGS (2)
  1. FEIBA 500 U INJEKTIO/INFUUSIOKUIVA-AINE JA LIUOTIN, LIUOSTA VARTEN [Suspect]
     Indication: PROPHYLAXIS
     Dosage: PROPHYLACTIC: 40-50 IU/KG
     Route: 065
     Dates: start: 201309, end: 20131128
  2. FEIBA 500 U INJEKTIO/INFUUSIOKUIVA-AINE JA LIUOTIN, LIUOSTA VARTEN [Suspect]
     Indication: HAEMORRHAGE
     Dosage: ON DEMAND FOR BLEEDING SYMPTOMS: 50-75 IU/KG
     Route: 065

REACTIONS (3)
  - Thrombosis [Unknown]
  - Device issue [Not Recovered/Not Resolved]
  - Arteriovenous fistula site complication [Unknown]
